FAERS Safety Report 10874293 (Version 3)
Quarter: 2015Q1

REPORT INFORMATION
  Report Type: Report from Study
  Country: CA (occurrence: CA)
  Receive Date: 20150227
  Receipt Date: 20150323
  Transmission Date: 20150721
  Serious: Yes (Other)
  Sender: FDA-Public Use
  Company Number: CA-ABBVIE-15K-028-1351218-00

PATIENT
  Age: 9 Year
  Sex: Male

DRUGS (2)
  1. HUMIRA [Suspect]
     Active Substance: ADALIMUMAB
     Indication: CROHN^S DISEASE
     Route: 058
     Dates: start: 20131029
  2. HUMIRA [Suspect]
     Active Substance: ADALIMUMAB
     Route: 058
     Dates: start: 20150226

REACTIONS (2)
  - Aggression [Recovering/Resolving]
  - Mental disorder [Recovering/Resolving]

NARRATIVE: CASE EVENT DATE: 201502
